FAERS Safety Report 4767901-6 (Version None)
Quarter: 2005Q3

REPORT INFORMATION
  Report Type: 
  Country: None (occurrence: None)
  Receive Date: 20050913
  Receipt Date: 20050523
  Transmission Date: 20060218
  Serious: Yes (Hospitalization)
  Sender: FDA-Public Use
  Company Number: AU-MERCK-0505AUS00283

PATIENT
  Age: 74 Year
  Sex: Female

DRUGS (7)
  1. LITHIUM CARBONATE [Concomitant]
     Route: 065
  2. FOSAMAX [Suspect]
     Indication: OSTEOPOROSIS
     Route: 048
     Dates: start: 19990101, end: 20050511
  3. CALCIUM (UNSPECIFIED) [Concomitant]
     Route: 065
  4. DICLOFENAC SODIUM [Concomitant]
     Route: 065
  5. OMEPRAZOLE [Concomitant]
     Route: 065
  6. ATORVASTATIN CALCIUM [Concomitant]
     Route: 065
  7. RIBOFLAVIN [Concomitant]
     Route: 065

REACTIONS (7)
  - DYSPHAGIA [None]
  - FALL [None]
  - INSOMNIA [None]
  - LARYNGEAL DISORDER [None]
  - NEGATIVE THOUGHTS [None]
  - PAIN [None]
  - SPEECH DISORDER [None]
